FAERS Safety Report 23416036 (Version 2)
Quarter: 2024Q1

REPORT INFORMATION
  Report Type: Report from Study
  Country: CO (occurrence: CO)
  Receive Date: 20240118
  Receipt Date: 20240228
  Transmission Date: 20240410
  Serious: Yes (Other)
  Sender: FDA-Public Use
  Company Number: CO-BAYER-2023A124009

PATIENT
  Sex: Female

DRUGS (4)
  1. EYLEA [Suspect]
     Active Substance: AFLIBERCEPT
     Indication: Age-related macular degeneration
     Dosage: 2MG INTRAVITREOUS MONTHLY FOR 3 MONTHS, THEN EVERY 2 MONTHS, SOLUTION FOR INJECTION, 40 MG/ML
     Route: 031
     Dates: start: 20230220, end: 20230220
  2. EYLEA [Suspect]
     Active Substance: AFLIBERCEPT
     Dosage: 2 MG , BOTH EYES, SOLUTION FOR INJECTION, 40MG/ML
     Route: 031
     Dates: start: 20230523, end: 20230523
  3. EYLEA [Suspect]
     Active Substance: AFLIBERCEPT
     Dosage: 2 MG , LEFT EYE, SOLUTION FOR INJECTION, 40 MG/ML
     Route: 031
     Dates: start: 20230717
  4. LEVOTHYROXINE [Concomitant]
     Active Substance: LEVOTHYROXINE\LEVOTHYROXINE SODIUM
     Indication: Hyperthyroidism
     Dosage: 50 MG

REACTIONS (5)
  - Blindness [Unknown]
  - Retinal tear [Not Recovered/Not Resolved]
  - Photopsia [Not Recovered/Not Resolved]
  - Visual impairment [Unknown]
  - Inappropriate schedule of product administration [Unknown]

NARRATIVE: CASE EVENT DATE: 20230101
